FAERS Safety Report 24623219 (Version 2)
Quarter: 2025Q1

REPORT INFORMATION
  Report Type: Spontaneous
  Country: FR (occurrence: FR)
  Receive Date: 20241115
  Receipt Date: 20250130
  Transmission Date: 20250408
  Serious: Yes (Hospitalization, Other)
  Sender: AUROBINDO
  Company Number: FR-GSK-FR2024GSK131631

PATIENT
  Age: 66 Year
  Sex: Female
  Weight: 83 kg

DRUGS (6)
  1. CARBOPLATIN [Suspect]
     Active Substance: CARBOPLATIN
     Indication: Endometrial cancer
     Route: 042
     Dates: start: 20240620
  2. CARBOPLATIN [Suspect]
     Active Substance: CARBOPLATIN
     Indication: Neoplasm
  3. PACLITAXEL [Suspect]
     Active Substance: PACLITAXEL
     Indication: Endometrial cancer
     Route: 042
     Dates: start: 20240620
  4. PACLITAXEL [Suspect]
     Active Substance: PACLITAXEL
     Indication: Neoplasm
  5. DOSTARLIMAB [Suspect]
     Active Substance: DOSTARLIMAB
     Indication: Endometrial cancer
     Route: 065
     Dates: start: 20240620, end: 20240801
  6. DOSTARLIMAB [Suspect]
     Active Substance: DOSTARLIMAB
     Indication: Neoplasm

REACTIONS (4)
  - Left ventricular failure [Recovered/Resolved with Sequelae]
  - Tubulointerstitial nephritis [Recovered/Resolved with Sequelae]
  - Acute kidney injury [Unknown]
  - Diastolic dysfunction [Unknown]

NARRATIVE: CASE EVENT DATE: 20240701
